FAERS Safety Report 4356532-8 (Version None)
Quarter: 2004Q2

REPORT INFORMATION
  Report Type: 
  Country: None (occurrence: None)
  Receive Date: 20040510
  Receipt Date: 20040510
  Transmission Date: 20050107
  Serious: Yes (Life-Threatening, Hospitalization)
  Sender: FDA-Public Use
  Company Number: None

PATIENT
  Age: 52 Year
  Sex: Female
  Weight: 90.7194 kg

DRUGS (8)
  1. PAXIL CR [Suspect]
     Indication: DEPRESSION
     Dosage: 37.5 MG 1 IN THE A ORAL
     Route: 048
     Dates: start: 19970415, end: 20040507
  2. PAXIL CR [Suspect]
     Indication: OBSESSIVE-COMPULSIVE DISORDER
     Dosage: 37.5 MG 1 IN THE A ORAL
     Route: 048
     Dates: start: 19970415, end: 20040507
  3. PAXIL CR [Suspect]
     Indication: POST-TRAUMATIC STRESS DISORDER
     Dosage: 37.5 MG 1 IN THE A ORAL
     Route: 048
     Dates: start: 19970415, end: 20040507
  4. PAXIL [Suspect]
     Dosage: 40 MG 1 IN THE P ORAL
     Route: 048
     Dates: start: 20020214, end: 20040507
  5. SEROQUEL [Concomitant]
  6. TRANXENE [Concomitant]
  7. MAXALT [Concomitant]
  8. TRIAMTRINE [Concomitant]

REACTIONS (6)
  - ABNORMAL BEHAVIOUR [None]
  - FEAR [None]
  - FEELING ABNORMAL [None]
  - HALLUCINATION [None]
  - HOMICIDAL IDEATION [None]
  - INTENTIONAL SELF-INJURY [None]
